FAERS Safety Report 16013505 (Version 1)
Quarter: 2019Q1

REPORT INFORMATION
  Report Type: Report from Study
  Country: US (occurrence: US)
  Receive Date: 20190227
  Receipt Date: 20190227
  Transmission Date: 20190418
  Serious: Yes (Hospitalization)
  Sender: FDA-Public Use
  Company Number: US-EISAI MEDICAL RESEARCH-EC-2019-050236

PATIENT
  Age: 58 Year
  Sex: Male
  Weight: 71 kg

DRUGS (18)
  1. FLUDROCORTISONE ACETATE. [Concomitant]
     Active Substance: FLUDROCORTISONE ACETATE
  2. OMEPRAZOLE. [Concomitant]
     Active Substance: OMEPRAZOLE
  3. AUGMENTIN [Concomitant]
     Active Substance: AMOXICILLIN\CLAVULANATE POTASSIUM
  4. METOPROLOL SUCCINATE. [Concomitant]
     Active Substance: METOPROLOL SUCCINATE
  5. OLANZAPINE. [Concomitant]
     Active Substance: OLANZAPINE
  6. PHOSPHORUS [Concomitant]
     Active Substance: PHOSPHORUS
  7. SERTRALINE [Concomitant]
     Active Substance: SERTRALINE HYDROCHLORIDE
  8. DRONABINOL. [Concomitant]
     Active Substance: DRONABINOL
  9. CARVEDILOL. [Concomitant]
     Active Substance: CARVEDILOL
  10. LENVIMA [Suspect]
     Active Substance: LENVATINIB
     Indication: RENAL CANCER
     Route: 048
     Dates: start: 201902, end: 201902
  11. DEXAMETHASONE. [Concomitant]
     Active Substance: DEXAMETHASONE
  12. ONDANSETRON [Concomitant]
     Active Substance: ONDANSETRON
  13. LORAZEPAM. [Concomitant]
     Active Substance: LORAZEPAM
  14. AQUAPHOR [Concomitant]
     Active Substance: PETROLATUM
  15. LENVIMA [Suspect]
     Active Substance: LENVATINIB
     Route: 048
     Dates: start: 20181204
  16. AFINITOR [Concomitant]
     Active Substance: EVEROLIMUS
  17. MIRALAX [Concomitant]
     Active Substance: POLYETHYLENE GLYCOL 3350
  18. OXYCODONE HYDROCHLORIDE. [Concomitant]
     Active Substance: OXYCODONE HYDROCHLORIDE

REACTIONS (8)
  - Blood pressure increased [Unknown]
  - Fatigue [Unknown]
  - Pain [Unknown]
  - Ejection fraction decreased [Unknown]
  - Rash [Not Recovered/Not Resolved]
  - Dry skin [Unknown]
  - Epistaxis [Unknown]
  - Oedema peripheral [Unknown]

NARRATIVE: CASE EVENT DATE: 20181230
